FAERS Safety Report 19665337 (Version 3)
Quarter: 2021Q3

REPORT INFORMATION
  Report Type: Report from Study
  Country: ZA (occurrence: ZA)
  Receive Date: 20210806
  Receipt Date: 20210909
  Transmission Date: 20211014
  Serious: Yes (Death)
  Sender: FDA-Public Use
  Company Number: ZA-REGENERON PHARMACEUTICALS, INC.-2021-73229

PATIENT

DRUGS (3)
  1. EYLEA [Suspect]
     Active Substance: AFLIBERCEPT
     Indication: AGE-RELATED MACULAR DEGENERATION
     Dosage: UNK; TOTAL OF 3 DOSES
     Dates: start: 20210319, end: 20210319
  2. EYLEA [Suspect]
     Active Substance: AFLIBERCEPT
     Dosage: UNK
     Dates: start: 20210419, end: 20210419
  3. EYLEA [Suspect]
     Active Substance: AFLIBERCEPT
     Dosage: UNK; LAST DOSE
     Dates: start: 20210520, end: 20210520

REACTIONS (1)
  - Death [Fatal]
